FAERS Safety Report 5911184-8 (Version None)
Quarter: 2008Q4

REPORT INFORMATION
  Report Type: 
  Country: None (occurrence: None)
  Receive Date: 20081007
  Receipt Date: 20080529
  Transmission Date: 20090506
  Serious: No
  Sender: FDA-Public Use
  Company Number: US-BRISTOL-MYERS SQUIBB COMPANY-14209753

PATIENT
  Age: 65 Year
  Sex: Female
  Weight: 55 kg

DRUGS (5)
  1. AVAPRO [Suspect]
     Indication: HYPERTENSION
     Dates: start: 20080517
  2. FORTEO [Concomitant]
  3. TYLENOL W/ CODEINE [Concomitant]
  4. RESTORIL [Concomitant]
  5. PREMPRO [Concomitant]

REACTIONS (2)
  - FATIGUE [None]
  - PAIN [None]
